FAERS Safety Report 21620719 (Version 8)
Quarter: 2023Q4

REPORT INFORMATION
  Report Type: Report from Study
  Country: US (occurrence: US)
  Receive Date: 20221121
  Receipt Date: 20231222
  Transmission Date: 20240110
  Serious: No
  Sender: FDA-Public Use
  Company Number: US-002147023-NVSC2022US261191

PATIENT
  Sex: Female

DRUGS (2)
  1. KESIMPTA [Suspect]
     Active Substance: OFATUMUMAB
     Indication: Multiple sclerosis
     Dosage: 20 MG, QMO
     Route: 058
     Dates: start: 202207
  2. KESIMPTA [Suspect]
     Active Substance: OFATUMUMAB
     Dosage: 20 MG
     Route: 058
     Dates: start: 20220730

REACTIONS (13)
  - Malaise [Unknown]
  - Fatigue [Unknown]
  - Cognitive disorder [Unknown]
  - Eye disorder [Unknown]
  - Memory impairment [Unknown]
  - Pain [Unknown]
  - Balance disorder [Unknown]
  - Asthenia [Unknown]
  - Vision blurred [Unknown]
  - Fall [Unknown]
  - Headache [Unknown]
  - Product use complaint [Unknown]
  - Panic attack [Unknown]
